FAERS Safety Report 9817075 (Version 2)
Quarter: 2014Q4

REPORT INFORMATION
  Report Type: Spontaneous
  Country: MX (occurrence: MX)
  Receive Date: 20140114
  Receipt Date: 20141015
  Transmission Date: 20150529
  Serious: No
  Sender: FDA-Public Use
  Company Number: PHHY2014MX003719

PATIENT
  Sex: Male
  Weight: 91 kg

DRUGS (15)
  1. EXELON PATCH [Suspect]
     Active Substance: RIVASTIGMINE
     Indication: DEMENTIA ALZHEIMER^S TYPE
     Dosage: 4.6 MG (5 CM2) DAILY
     Route: 062
     Dates: start: 201301, end: 2014
  2. SOMAZINA [Concomitant]
     Indication: ISCHAEMIC HEART DISEASE PROPHYLAXIS
     Dosage: 1 DF, DAILY IN THE MORGNING
     Route: 048
     Dates: start: 201201
  3. SHOT B [Concomitant]
     Indication: MEDICAL DIET
     Dosage: 1 DF, DAILY IN THE MORGNING
     Route: 048
     Dates: start: 201201
  4. CLONAZEPAM. [Concomitant]
     Active Substance: CLONAZEPAM
     Indication: INSOMNIA
     Dosage: 1 DF, DAILY
     Route: 048
     Dates: start: 201201
  5. OLANZAPINE. [Concomitant]
     Active Substance: OLANZAPINE
     Indication: INSOMNIA
     Dosage: 0.5 DF, DAILY AT NIGHT
     Route: 048
     Dates: start: 201201
  6. EBIXA [Concomitant]
     Active Substance: MEMANTINE HYDROCHLORIDE
     Indication: DEPRESSION
     Dosage: 1 DF, DAILY IN THE MORGNING
     Route: 048
     Dates: start: 2012
  7. ACETYLSALICYLIC ACID [Concomitant]
     Active Substance: ASPIRIN
     Indication: ISCHAEMIC HEART DISEASE PROPHYLAXIS
     Dosage: 0.5 DF, DAILY IN THE AFTERNOON
     Route: 048
     Dates: start: 2009
  8. PRAVASTATIN [Concomitant]
     Active Substance: PRAVASTATIN\PRAVASTATIN SODIUM
     Indication: BLOOD CHOLESTEROL ABNORMAL
     Dosage: 1 DF, DAILY AT NIGHT
     Route: 048
     Dates: start: 201310
  9. CHLORTALIDONE [Concomitant]
     Active Substance: CHLORTHALIDONE
     Indication: HYPERTENSION
     Dosage: 0.5 DF, DAILY IN THE MORNING
     Route: 048
     Dates: start: 2012
  10. XALATAN [Concomitant]
     Active Substance: LATANOPROST
     Indication: GLAUCOMA
     Dosage: 1 DRP, IN EACH EYE, DAILY AT NIGHT
     Dates: start: 2007
  11. EBIXA [Concomitant]
     Active Substance: MEMANTINE HYDROCHLORIDE
     Indication: SENILE DEMENTIA
  12. LEVOMEPROMAZINE [Concomitant]
     Active Substance: LEVOMEPROMAZINE
     Indication: INSOMNIA
     Dosage: 0.25 DF, DAILY AT NIGHT
     Route: 048
     Dates: start: 201201
  13. TIMOLOL [Concomitant]
     Active Substance: TIMOLOL
     Indication: GLAUCOMA
     Dosage: 2 DRP, IN EACH EYE, EVERY 12 HOURS
     Dates: start: 2009
  14. RITALIN [Suspect]
     Active Substance: METHYLPHENIDATE HYDROCHLORIDE
     Indication: DEPRESSION
     Dosage: 2 DF, 1 IN THE MORNING AND 1 IN THE AFTERNOON
     Route: 048
     Dates: start: 2012
  15. CONTUMAX [Concomitant]
     Indication: CONSTIPATION
     Dosage: 1 DF, QW
     Route: 048
     Dates: start: 201207

REACTIONS (2)
  - Renal impairment [Recovered/Resolved]
  - Expired product administered [Not Recovered/Not Resolved]

NARRATIVE: CASE EVENT DATE: 201304
